FAERS Safety Report 9479663 (Version 2)
Quarter: 2013Q3

REPORT INFORMATION
  Report Type: Report from Study
  Country: JP (occurrence: JP)
  Receive Date: 20130827
  Receipt Date: 20130827
  Transmission Date: 20140515
  Serious: Yes (Hospitalization, Other)
  Sender: FDA-Public Use
  Company Number: PHHO2009JP03621

PATIENT
  Age: 72 Year
  Sex: Male
  Weight: 74 kg

DRUGS (32)
  1. ALISKIREN [Suspect]
     Indication: CARDIOVASCULAR DISORDER
     Route: 048
     Dates: start: 20080924, end: 20081030
  2. ALISKIREN [Suspect]
     Route: 048
     Dates: start: 20081121, end: 20081222
  3. MICARDIS [Concomitant]
     Indication: HYPERTENSION
  4. BAYASPIRIN [Concomitant]
     Indication: ARTERIOSCLEROSIS
  5. GASTER [Concomitant]
     Indication: GASTRITIS
  6. CONIEL [Concomitant]
     Indication: HYPERTENSION
  7. AMARYL [Concomitant]
     Indication: DIABETES MELLITUS
  8. HARNAL [Concomitant]
     Indication: BENIGN PROSTATIC HYPERPLASIA
     Dosage: 0.2 MG, UNK
     Route: 048
     Dates: start: 20080530
  9. ADALAT CR [Concomitant]
     Indication: HYPERTENSION
  10. CALCIUM POLYSTYRENE SULFONATE [Concomitant]
     Indication: HYPERKALAEMIA
  11. SENNOSIDE [Concomitant]
     Indication: CONSTIPATION
  12. RINGEREAZE [Concomitant]
  13. FLOMOX [Concomitant]
  14. MUCOSTA [Concomitant]
  15. LEFTOSE [Concomitant]
  16. CALONAL [Concomitant]
  17. INFLUENZA VACCINE [Concomitant]
  18. KLARICID [Concomitant]
  19. ASTOMIN [Concomitant]
  20. MUCODYNE [Concomitant]
  21. FLUMETHOLON [Concomitant]
  22. ITOROL [Concomitant]
  23. HOKUNALIN [Concomitant]
  24. BASEN [Concomitant]
     Indication: DIABETES MELLITUS
  25. ALGIMATE [Concomitant]
  26. MS REISHIPPU ASTRA [Concomitant]
     Indication: OSTEOARTHRITIS
  27. KREMEZIN [Concomitant]
     Indication: DIABETIC NEPHROPATHY
  28. LAXOBERON [Concomitant]
     Indication: CONSTIPATION
  29. FUROSEMID [Concomitant]
     Indication: CARDIAC FAILURE
     Dates: start: 20100416
  30. EPADEL [Concomitant]
     Indication: PERIPHERAL ARTERIAL OCCLUSIVE DISEASE
     Dates: start: 20100709
  31. EPOGIN [Concomitant]
     Indication: NEPHROGENIC ANAEMIA
     Dates: start: 20100115
  32. CALCIUM POLYSTYRENE SULFONATE [Concomitant]

REACTIONS (18)
  - Myocardial infarction [Recovering/Resolving]
  - Cardiac failure [Not Recovered/Not Resolved]
  - Cardiac hypertrophy [Unknown]
  - Oedema [Not Recovered/Not Resolved]
  - Orthopnoea [Not Recovered/Not Resolved]
  - Nocturnal dyspnoea [Not Recovered/Not Resolved]
  - Oedema peripheral [Recovering/Resolving]
  - Ventricular extrasystoles [Unknown]
  - Tachycardia [Unknown]
  - Dyspnoea [Recovering/Resolving]
  - Face oedema [Recovering/Resolving]
  - Palpitations [Recovering/Resolving]
  - Eye swelling [Not Recovered/Not Resolved]
  - Weight increased [Recovering/Resolving]
  - Sleep apnoea syndrome [Recovering/Resolving]
  - Renal failure [Not Recovered/Not Resolved]
  - Anaemia [Unknown]
  - Nephrogenic anaemia [Unknown]
